FAERS Safety Report 11139527 (Version 1)
Quarter: 2015Q2

REPORT INFORMATION
  Report Type: Spontaneous
  Country: JP (occurrence: JP)
  Receive Date: 20150527
  Receipt Date: 20150527
  Transmission Date: 20150821
  Serious: Yes (Death)
  Sender: FDA-Public Use
  Company Number: JP-PFIZER INC-2015175476

PATIENT
  Age: 75 Year
  Sex: Male

DRUGS (5)
  1. BIOFERMINE [Suspect]
     Active Substance: PROBIOTICS NOS
     Indication: CLOSTRIDIUM DIFFICILE INFECTION
     Dosage: 2 G, 4X/DAY
  2. GLUTAMINE [Suspect]
     Active Substance: GLUTAMINE
     Indication: CLOSTRIDIUM DIFFICILE INFECTION
     Dosage: 3 G, 4X/DAY
  3. VANCOMYCIN HCL [Suspect]
     Active Substance: VANCOMYCIN HYDROCHLORIDE
     Indication: CLOSTRIDIUM DIFFICILE COLITIS
     Dosage: 1 G, 4X/DAY
  4. METRONIDAZOLE. [Suspect]
     Active Substance: METRONIDAZOLE
     Indication: CLOSTRIDIUM DIFFICILE COLITIS
     Dosage: 1500 MG, DAILY (FIRST)
  5. CEFMETAZOLE [Suspect]
     Active Substance: CEFMETAZOLE
     Indication: ANTIBIOTIC PROPHYLAXIS
     Dosage: 2 G, DAILY

REACTIONS (9)
  - C-reactive protein increased [None]
  - Flatulence [None]
  - Septic shock [None]
  - White blood cell count increased [None]
  - Drug ineffective [Fatal]
  - Bacteraemia [None]
  - Clostridium test positive [None]
  - Enteritis [None]
  - Haematochezia [None]
